FAERS Safety Report 5317342-8 (Version None)
Quarter: 2007Q2

REPORT INFORMATION
  Report Type: 
  Country: None (occurrence: None)
  Receive Date: 20070504
  Receipt Date: 20070424
  Transmission Date: 20071010
  Serious: Yes (Other)
  Sender: FDA-Public Use
  Company Number: US-PFIZER INC-2007034278

PATIENT
  Age: 83 Year
  Sex: Female
  Weight: 44 kg

DRUGS (1)
  1. CHANTIX [Suspect]
     Indication: SMOKING CESSATION THERAPY
     Dates: start: 20070328, end: 20070401

REACTIONS (8)
  - ANXIETY [None]
  - FEELING ABNORMAL [None]
  - MENTAL IMPAIRMENT [None]
  - NAUSEA [None]
  - RASH [None]
  - RESTLESSNESS [None]
  - SUICIDAL IDEATION [None]
  - VOMITING [None]
